FAERS Safety Report 19321574 (Version 1)
Quarter: 2021Q2

REPORT INFORMATION
  Report Type: Spontaneous
  Country: FR (occurrence: FR)
  Receive Date: 20210528
  Receipt Date: 20210528
  Transmission Date: 20210717
  Serious: Yes (Life-Threatening, Hospitalization, Other)
  Sender: FDA-Public Use
  Company Number: FR-SHILPA MEDICARE LIMITED-SML-FR-2021-00655

PATIENT
  Age: 59 Year
  Sex: Female

DRUGS (4)
  1. DOCETAXEL, UNKNOWN [Suspect]
     Active Substance: DOCETAXEL
     Indication: HORMONE RECEPTOR POSITIVE BREAST CANCER
     Route: 065
  2. CYCLOPHOSPHAMIDE. [Suspect]
     Active Substance: CYCLOPHOSPHAMIDE
     Indication: HER2 NEGATIVE BREAST CANCER
  3. DOCETAXEL, UNKNOWN [Suspect]
     Active Substance: DOCETAXEL
     Indication: HER2 NEGATIVE BREAST CANCER
  4. CYCLOPHOSPHAMIDE. [Suspect]
     Active Substance: CYCLOPHOSPHAMIDE
     Indication: HORMONE RECEPTOR POSITIVE BREAST CANCER
     Route: 065

REACTIONS (13)
  - Thrombotic microangiopathy [Recovered/Resolved]
  - Oesophageal achalasia [Recovered/Resolved]
  - Raynaud^s phenomenon [Recovered/Resolved]
  - Scleroderma renal crisis [Recovered/Resolved]
  - Systemic scleroderma [Recovered/Resolved]
  - Pyramidal tract syndrome [Recovered/Resolved]
  - Toxicity to various agents [Recovered/Resolved]
  - Posterior reversible encephalopathy syndrome [Recovered/Resolved]
  - Hypertension [Recovered/Resolved]
  - Interstitial lung disease [Recovered/Resolved]
  - Acute kidney injury [Recovered/Resolved]
  - Alveolitis [Recovered/Resolved]
  - Right ventricular failure [Recovered/Resolved]
